FAERS Safety Report 23147568 (Version 2)
Quarter: 2023Q4

REPORT INFORMATION
  Report Type: Spontaneous
  Country: US (occurrence: US)
  Receive Date: 20231106
  Receipt Date: 20231215
  Transmission Date: 20240110
  Serious: No
  Sender: FDA-Public Use
  Company Number: US-JNJFOC-20231021951

PATIENT
  Sex: Female

DRUGS (1)
  1. WOMENS ROGAINE UNSCENTED [Suspect]
     Active Substance: MINOXIDIL
     Indication: Product used for unknown indication
     Dosage: USED MORE THAN DIRECTED
     Route: 061
     Dates: start: 20220726

REACTIONS (3)
  - Alopecia [Unknown]
  - Product formulation issue [Unknown]
  - Overdose [Unknown]
